FAERS Safety Report 7073122 (Version 2)
Quarter: 2012Q4

REPORT INFORMATION
  Report Type: Report from Study
  Country: ES (occurrence: ES)
  Receive Date: 20090805
  Receipt Date: 20121106
  Transmission Date: 20130627
  Serious: Yes (Other)
  Sender: FDA-Public Use
  Company Number: ES-JNJFOC-20090709894

PATIENT
  Age: 54 Year
  Sex: Female

DRUGS (7)
  1. REMICADE [Suspect]
     Indication: RHEUMATOID ARTHRITIS
     Dosage: Dose^4^ Units not provided
     Route: 042
     Dates: start: 20000522, end: 20031205
  2. STEROIDS NOS [Concomitant]
  3. METHOTREXATE [Concomitant]
  4. NSAIDS [Concomitant]
  5. FOLIC ACID [Concomitant]
  6. OMEPRAZOLE [Concomitant]
  7. ALL OTHER THERAPEUTIC DRUGS [Concomitant]

REACTIONS (1)
  - Tuberculosis [Recovered/Resolved]
